FAERS Safety Report 7264785-1 (Version None)
Quarter: 2011Q1

REPORT INFORMATION
  Report Type: 
  Country: None (occurrence: None)
  Receive Date: 20110131
  Receipt Date: 20110126
  Transmission Date: 20110831
  Serious: Yes (Life-Threatening, Hospitalization)
  Sender: FDA-Public Use
  Company Number: DE-US-EMD SERONO, INC.-7038230

PATIENT
  Sex: Male
  Weight: 72 kg

DRUGS (2)
  1. REBIF [Suspect]
     Route: 058
     Dates: start: 20070801, end: 20110103
  2. REBIF [Suspect]
     Indication: MULTIPLE SCLEROSIS
     Route: 058
     Dates: start: 20031101, end: 20070801

REACTIONS (4)
  - MYOCARDIAL INFARCTION [None]
  - MALAISE [None]
  - CORONARY ARTERY DISEASE [None]
  - SLEEP DISORDER [None]
